FAERS Safety Report 9576532 (Version 1)
Quarter: 2013Q4

REPORT INFORMATION
  Report Type: Spontaneous
  Country: US (occurrence: US)
  Receive Date: 20131001
  Receipt Date: 20131001
  Transmission Date: 20140711
  Serious: No
  Sender: FDA-Public Use
  Company Number: US-AMGEN-USASP2013008338

PATIENT
  Sex: Female

DRUGS (2)
  1. ENBREL [Suspect]
     Dosage: 25 MG, 2 TIMES/WK
     Dates: start: 2005, end: 2009
  2. ENBREL [Suspect]
     Dosage: 50 MG, UNK
     Dates: start: 201203

REACTIONS (1)
  - Rotavirus infection [Recovered/Resolved]
